FAERS Safety Report 16448883 (Version 1)
Quarter: 2019Q2

REPORT INFORMATION
  Report Type: Spontaneous
  Country: US (occurrence: US)
  Receive Date: 20190619
  Receipt Date: 20190619
  Transmission Date: 20190711
  Serious: Yes (Hospitalization, Other)
  Sender: FDA-Public Use
  Company Number: US-LUPIN PHARMACEUTICALS INC.-2019-03753

PATIENT
  Age: 59 Year
  Sex: Male
  Weight: 78.6 kg

DRUGS (7)
  1. VANCOMYCIN [Suspect]
     Active Substance: VANCOMYCIN
     Indication: INFECTION
     Dosage: 1000 GRAM (CALCIUM SULFATE STIMULAN BEADS)
     Route: 065
  2. CEFEPIME [Concomitant]
     Active Substance: CEFEPIME HYDROCHLORIDE
     Indication: PRODUCT USED FOR UNKNOWN INDICATION
     Dosage: UNK
     Route: 065
  3. VANCOMYCIN [Suspect]
     Active Substance: VANCOMYCIN
     Dosage: 1.5 GRAM, BID
     Route: 065
  4. ADALIMUMAB [Concomitant]
     Active Substance: ADALIMUMAB
     Indication: ANKYLOSING SPONDYLITIS
     Dosage: UNK
     Route: 065
  5. TOBRAMYCIN. [Suspect]
     Active Substance: TOBRAMYCIN
     Indication: INFECTION
     Dosage: 2.4 GRAM  (CALCIUM SULFATE STIMULAN BEADS)
     Route: 065
  6. CEFTRIAXONE. [Concomitant]
     Active Substance: CEFTRIAXONE
     Indication: PRODUCT USED FOR UNKNOWN INDICATION
     Dosage: UNK
     Route: 051
  7. VANCOMYCIN [Suspect]
     Active Substance: VANCOMYCIN
     Dosage: 1.25 GRAM, BID
     Route: 065

REACTIONS (2)
  - Toxicity to various agents [Recovered/Resolved]
  - Renal tubular necrosis [Recovered/Resolved]
